FAERS Safety Report 4551711-9 (Version None)
Quarter: 2005Q1

REPORT INFORMATION
  Report Type: 
  Country: None (occurrence: None)
  Receive Date: 20050113
  Receipt Date: 20041229
  Transmission Date: 20050727
  Serious: Yes (Hospitalization)
  Sender: FDA-Public Use
  Company Number: FR-JNJFOC-20050101283

PATIENT
  Age: 39 Year
  Sex: Female

DRUGS (8)
  1. TOPALGIC [Suspect]
     Indication: DRUG USE FOR UNKNOWN INDICATION
     Route: 049
  2. DI-ANTALVIC [Suspect]
     Route: 049
  3. DI-ANTALVIC [Suspect]
     Indication: DRUG USE FOR UNKNOWN INDICATION
     Route: 049
  4. EFFERALGAN CODEINE [Suspect]
     Route: 049
  5. EFFERALGAN CODEINE [Suspect]
     Indication: DRUG USE FOR UNKNOWN INDICATION
     Route: 049
  6. AERIUS [Suspect]
     Route: 049
  7. LYSANXIA [Suspect]
     Indication: ANXIETY
     Route: 049
  8. LEXOMIL [Suspect]
     Indication: ANXIETY
     Route: 049

REACTIONS (1)
  - ECZEMA [None]
